FAERS Safety Report 4393929-4 (Version None)
Quarter: 2004Q3

REPORT INFORMATION
  Report Type: 
  Country: None (occurrence: None)
  Receive Date: 20040702
  Receipt Date: 20040621
  Transmission Date: 20050211
  Serious: Yes (Death, Life-Threatening, Hospitalization, Other)
  Sender: FDA-Public Use
  Company Number: 2003122915

PATIENT
  Sex: Female

DRUGS (6)
  1. ZITHROMAX [Suspect]
     Indication: ILL-DEFINED DISORDER
  2. GEODON [Suspect]
     Indication: MAJOR DEPRESSION
     Dosage: 120 MG (BID), ORAL
     Route: 048
  3. GATIFLOXACIN [Suspect]
     Indication: ILL-DEFINED DISORDER
     Dates: start: 20031001, end: 20031001
  4. PAROXETINE HCL [Concomitant]
  5. HYDROXYZINE EMBONATE (HYDROXYZINE EMBONATE) [Concomitant]
  6. METHADONE HCL [Concomitant]

REACTIONS (16)
  - ABDOMINAL PAIN UPPER [None]
  - ACTIVATED PARTIAL THROMBOPLASTIN TIME PROLONGED [None]
  - BLOOD CREATININE INCREASED [None]
  - BLOOD GLUCOSE INCREASED [None]
  - CARDIO-RESPIRATORY ARREST [None]
  - CONVULSION [None]
  - DEPRESSION [None]
  - DRUG HYPERSENSITIVITY [None]
  - ELECTROCARDIOGRAM QT PROLONGED [None]
  - FALL [None]
  - HEAD INJURY [None]
  - MYOCARDIAL INFARCTION [None]
  - PROTHROMBIN TIME PROLONGED [None]
  - PSYCHOTIC DISORDER [None]
  - VENTRICULAR FIBRILLATION [None]
  - VENTRICULAR TACHYCARDIA [None]
